FAERS Safety Report 7395307-2 (Version None)
Quarter: 2011Q2

REPORT INFORMATION
  Report Type: 
  Country: None (occurrence: None)
  Receive Date: 20110405
  Receipt Date: 20110328
  Transmission Date: 20111010
  Serious: Yes (Hospitalization, Other)
  Sender: FDA-Public Use
  Company Number: ES-AMGEN-ESPSP2011015377

PATIENT
  Age: 79 Year
  Sex: Female

DRUGS (6)
  1. TOPOTECAN [Suspect]
     Dosage: 1.2 MG, QD
     Route: 042
     Dates: start: 20101018, end: 20101022
  2. DEXAMETHASONE [Suspect]
     Indication: LUNG NEOPLASM MALIGNANT
     Dosage: 8 MG, UNK
     Route: 042
     Dates: start: 20101018, end: 20101022
  3. NEULASTA [Suspect]
     Indication: CHEMOTHERAPY
     Dosage: 6 MG, UNK
     Route: 058
     Dates: start: 20101022, end: 20101022
  4. KYTRIL [Suspect]
     Indication: PROPHYLAXIS
     Dosage: 1 MG/ML, UNK
     Route: 042
     Dates: start: 20101018, end: 20101022
  5. PARACETAMOL [Concomitant]
     Dosage: UNK
     Dates: start: 20080301
  6. OMEPRAZOLE [Concomitant]
     Dates: start: 20101022

REACTIONS (3)
  - HEPATITIS CHOLESTATIC [None]
  - RESPIRATORY DISORDER [None]
  - PYREXIA [None]
